FAERS Safety Report 16458591 (Version 1)
Quarter: 2019Q2

REPORT INFORMATION
  Report Type: Spontaneous
  Country: US (occurrence: US)
  Receive Date: 20190620
  Receipt Date: 20190620
  Transmission Date: 20190711
  Serious: No
  Sender: FDA-Public Use
  Company Number: US-THERAPEUTICSMD-2019TMD00687

PATIENT
  Sex: Female
  Weight: 54.42 kg

DRUGS (8)
  1. IMVEXXY [Suspect]
     Active Substance: ESTRADIOL
     Dosage: 4 ?G, 1X/WEEK
     Route: 067
     Dates: end: 20190404
  2. IMVEXXY [Suspect]
     Active Substance: ESTRADIOL
     Indication: VULVOVAGINAL DRYNESS
     Dosage: 10 ?G, 2X/WEEK
     Route: 067
     Dates: start: 2018
  3. VITAMIN C [Concomitant]
     Active Substance: ASCORBIC ACID
  4. IMVEXXY [Suspect]
     Active Substance: ESTRADIOL
     Indication: VULVOVAGINAL DRYNESS
     Dosage: 4 ?G, 2X/WEEK
     Route: 067
  5. VITAMIN D [Concomitant]
     Active Substance: VITAMIN D NOS
  6. PROBIOTICS [Concomitant]
     Active Substance: PROBIOTICS NOS
  7. MAGNESIUM [Concomitant]
     Active Substance: MAGNESIUM
  8. BIOTIN [Concomitant]
     Active Substance: BIOTIN

REACTIONS (2)
  - Off label use [Recovered/Resolved]
  - Headache [Recovered/Resolved]

NARRATIVE: CASE EVENT DATE: 2018
